FAERS Safety Report 9030478 (Version 2)
Quarter: 2013Q1

REPORT INFORMATION
  Report Type: Spontaneous
  Country: US (occurrence: US)
  Receive Date: 20130122
  Receipt Date: 20130205
  Transmission Date: 20140127
  Serious: Yes (Other)
  Sender: FDA-Public Use
  Company Number: US-PFIZER INC-2013023242

PATIENT
  Age: 58 Year
  Sex: Female
  Weight: 61.68 kg

DRUGS (4)
  1. VENLAFAXINE HYDROCHLORIDE [Suspect]
     Indication: DEPRESSION
     Dosage: UNK
     Route: 048
     Dates: start: 2012, end: 2012
  2. VENLAFAXINE HYDROCHLORIDE [Suspect]
     Indication: ANXIETY
     Dosage: UNK, AS NEEDED
     Route: 048
     Dates: start: 2012, end: 2012
  3. VENLAFAXINE HYDROCHLORIDE [Suspect]
     Dosage: 75 MG, 1 CAPSULE DAILY (24HOURS)
     Route: 048
     Dates: start: 2012, end: 2012
  4. NORVASC [Concomitant]
     Indication: HYPERTENSION
     Dosage: 5 MG, DAILY

REACTIONS (12)
  - Mental impairment [Unknown]
  - Malaise [Unknown]
  - Sedation [Unknown]
  - Feeling abnormal [Unknown]
  - Sluggishness [Unknown]
  - Nervousness [Unknown]
  - Discomfort [Unknown]
  - Feeling jittery [Unknown]
  - Incorrect dose administered [Unknown]
  - Drug ineffective [Unknown]
  - Hypersensitivity [Unknown]
  - Drug hypersensitivity [Unknown]
